FAERS Safety Report 4744571-4 (Version None)
Quarter: 2005Q3

REPORT INFORMATION
  Report Type: 
  Country: None (occurrence: None)
  Receive Date: 20050812
  Receipt Date: 20050802
  Transmission Date: 20060218
  Serious: Yes (Life-Threatening)
  Sender: FDA-Public Use
  Company Number: ES-ABBOTT-05P-144-0307408-00

PATIENT
  Age: 54 Year
  Sex: Female

DRUGS (3)
  1. DEPAKENE [Suspect]
     Indication: CONVULSION
     Route: 048
     Dates: start: 20050406, end: 20050622
  2. TEMOZOLOMIDE [Suspect]
     Indication: CENTRAL NERVOUS SYSTEM NEOPLASM
     Route: 048
     Dates: start: 20050501, end: 20050525
  3. PHENYTOIN [Concomitant]
     Indication: CONVULSION
     Route: 048
     Dates: start: 20050329, end: 20050406

REACTIONS (3)
  - AGRANULOCYTOSIS [None]
  - ECTHYMA [None]
  - RASH MACULO-PAPULAR [None]
